FAERS Safety Report 9333460 (Version 2)
Quarter: 2013Q2

REPORT INFORMATION
  Report Type: Report from Study
  Country: US (occurrence: US)
  Receive Date: 20130606
  Receipt Date: 20130619
  Transmission Date: 20140414
  Serious: No
  Sender: FDA-Public Use
  Company Number: US-VERTEX PHARMACEUTICALS INC-2013-006760

PATIENT
  Age: 47 Year
  Sex: Female

DRUGS (5)
  1. VX-950 (TELAPREVIR) [Suspect]
     Indication: HEPATITIS C
     Dosage: 750 MG, TID
     Route: 048
     Dates: start: 20130531
  2. PEGASYS [Suspect]
     Indication: HEPATITIS C
     Dosage: 180 ?G (0.5ML), QW
     Route: 058
     Dates: start: 20130531
  3. RIBAVIRIN [Suspect]
     Indication: HEPATITIS C
     Dosage: 600MG AM, 600MG PM
     Route: 048
     Dates: start: 20130531
  4. LISINOPRIL HCTZ [Concomitant]
     Dosage: 25-20, QD
  5. GABAPENTIN [Concomitant]
     Dosage: 300 MG, UNK

REACTIONS (5)
  - Thyroid function test abnormal [Unknown]
  - Insomnia [Not Recovered/Not Resolved]
  - Flushing [Not Recovered/Not Resolved]
  - Abdominal distension [Not Recovered/Not Resolved]
  - Anal pruritus [Recovered/Resolved]
